FAERS Safety Report 18027359 (Version 3)
Quarter: 2020Q3

REPORT INFORMATION
  Report Type: Spontaneous
  Country: FR (occurrence: FR)
  Receive Date: 20200715
  Receipt Date: 20200914
  Transmission Date: 20201103
  Serious: Yes (Other)
  Sender: FDA-Public Use
  Company Number: FR-AMGEN-FRANI2020090117

PATIENT
  Age: 46 Year
  Sex: Male
  Weight: 64.5 kg

DRUGS (27)
  1. ADOPORT [Suspect]
     Active Substance: TACROLIMUS
     Dosage: 11.5 MILLIGRAM
     Route: 048
     Dates: start: 20190830
  2. ADOPORT [Suspect]
     Active Substance: TACROLIMUS
     Dosage: 12 MILLIGRAM
     Route: 048
  3. ADOPORT [Suspect]
     Active Substance: TACROLIMUS
     Dosage: 15 MILLIGRAM
     Route: 048
  4. ADOPORT [Suspect]
     Active Substance: TACROLIMUS
     Dosage: 14 MILLIGRAM
     Route: 048
     Dates: start: 20190925
  5. ADOPORT [Suspect]
     Active Substance: TACROLIMUS
     Dosage: 12 MILLIGRAM
     Route: 048
     Dates: start: 20190827, end: 20190827
  6. ADOPORT [Suspect]
     Active Substance: TACROLIMUS
     Dosage: 10.5 MILLIGRAM
     Route: 048
     Dates: start: 20191026
  7. ARANESP [Suspect]
     Active Substance: DARBEPOETIN ALFA
     Indication: ANAEMIA
     Dosage: 40 MICROGRAM
     Route: 065
     Dates: start: 20190823
  8. SODIUM BICARBONATE. [Concomitant]
     Active Substance: SODIUM BICARBONATE
     Indication: PRODUCT USED FOR UNKNOWN INDICATION
     Dosage: UNK
     Route: 065
     Dates: start: 20190825
  9. TRIMETHOPRIM SULFAMETHOXAZOLE [Concomitant]
     Active Substance: SULFAMETHOXAZOLE\TRIMETHOPRIM
     Indication: PRODUCT USED FOR UNKNOWN INDICATION
     Dosage: UNK
     Route: 065
     Dates: start: 20190820
  10. MYFORTIC [Concomitant]
     Active Substance: MYCOPHENOLATE SODIUM
     Indication: PRODUCT USED FOR UNKNOWN INDICATION
     Dosage: UNK
     Route: 065
     Dates: start: 20190820
  11. ADOPORT [Suspect]
     Active Substance: TACROLIMUS
     Dosage: 8.5 MILLIGRAM
     Route: 048
     Dates: start: 20190821
  12. ADOPORT [Suspect]
     Active Substance: TACROLIMUS
     Dosage: 6 MILLIGRAM
     Route: 048
     Dates: start: 20190822
  13. ADOPORT [Suspect]
     Active Substance: TACROLIMUS
     Dosage: 11.5 MILLIGRAM
     Route: 048
     Dates: start: 20190826
  14. POLYETHYLENE GLYCOL;POTASSIUM CHLORIDE;SODIUM BICARBONATE [Concomitant]
     Indication: PRODUCT USED FOR UNKNOWN INDICATION
     Dosage: UNK
     Route: 065
     Dates: start: 20190821
  15. VALGANCICLOVIR. [Concomitant]
     Active Substance: VALGANCICLOVIR
     Indication: PRODUCT USED FOR UNKNOWN INDICATION
     Dosage: UNK
     Route: 065
     Dates: start: 20190823
  16. ADOPORT [Suspect]
     Active Substance: TACROLIMUS
     Dosage: 13 MILLIGRAM
     Route: 048
  17. ADOPORT [Suspect]
     Active Substance: TACROLIMUS
     Dosage: 13 MILLIGRAM
     Route: 048
     Dates: start: 20190903
  18. ADOPORT [Suspect]
     Active Substance: TACROLIMUS
     Dosage: 9.5 MILLIGRAM
     Route: 048
     Dates: start: 20190824
  19. ADOPORT [Suspect]
     Active Substance: TACROLIMUS
     Dosage: 11 MILLIGRAM
     Route: 048
     Dates: start: 20190831
  20. ADOPORT [Suspect]
     Active Substance: TACROLIMUS
     Dosage: 8.5 MILLIGRAM
     Route: 048
     Dates: start: 20190823
  21. ADOPORT [Suspect]
     Active Substance: TACROLIMUS
     Dosage: 7 MILLIGRAM
     Route: 048
     Dates: start: 20190821
  22. ADOPORT [Suspect]
     Active Substance: TACROLIMUS
     Dosage: 12 MILLIGRAM
     Route: 048
     Dates: start: 20191002
  23. PREDNISONE. [Concomitant]
     Active Substance: PREDNISONE
     Indication: PRODUCT USED FOR UNKNOWN INDICATION
     Dosage: UNK
     Route: 065
     Dates: start: 20190822
  24. ADOPORT [Suspect]
     Active Substance: TACROLIMUS
     Indication: RENAL TRANSPLANT
     Dosage: 12 MILLIGRAM
     Route: 048
     Dates: start: 20190827
  25. ADOPORT [Suspect]
     Active Substance: TACROLIMUS
     Dosage: 11 MILLIGRAM
     Route: 048
     Dates: start: 20190825
  26. ADOPORT [Suspect]
     Active Substance: TACROLIMUS
     Dosage: 10 MILLIGRAM
     Route: 048
     Dates: start: 20191011
  27. LANSOPRAZOLE. [Concomitant]
     Active Substance: LANSOPRAZOLE
     Indication: PRODUCT USED FOR UNKNOWN INDICATION
     Dosage: UNK
     Route: 065
     Dates: start: 20190821

REACTIONS (7)
  - Hypotension [Recovered/Resolved]
  - Drug hypersensitivity [Recovered/Resolved]
  - Acidosis [Recovered/Resolved]
  - Transplant dysfunction [Recovering/Resolving]
  - Tremor [Recovered/Resolved]
  - Hepatic function abnormal [Recovered/Resolved]
  - Haematoma [Recovered/Resolved]

NARRATIVE: CASE EVENT DATE: 20190823
